FAERS Safety Report 8784092 (Version 1)
Quarter: 2012Q4

REPORT INFORMATION
  Report Type: 
  Country: US (occurrence: US)
  Receive Date: 20120913
  Receipt Date: 20120913
  Transmission Date: 20130627
  Serious: No
  Sender: FDA-Public Use
  Company Number: US-ASTRAZENECA-2012SE60655

PATIENT
  Age: 56 Year
  Sex: Female
  Weight: 65.3 kg

DRUGS (3)
  1. SEROQUEL [Suspect]
     Indication: ANXIETY
     Route: 048
     Dates: start: 2010, end: 201208
  2. SEROQUEL [Suspect]
     Indication: ANXIETY
     Route: 048
     Dates: start: 201208
  3. CLONAZEPAM [Concomitant]
     Indication: ANXIETY
     Dates: start: 2010

REACTIONS (4)
  - Insomnia [Recovered/Resolved]
  - Muscle twitching [Recovered/Resolved]
  - Therapeutic response unexpected [Unknown]
  - Off label use [Unknown]
